FAERS Safety Report 6716010-5 (Version None)
Quarter: 2010Q2

REPORT INFORMATION
  Report Type: 
  Country: None (occurrence: None)
  Receive Date: 20100507
  Receipt Date: 20100503
  Transmission Date: 20101027
  Serious: No
  Sender: FDA-Public Use
  Company Number: US-ASTRAZENECA-2010SE13584

PATIENT
  Age: 35 Year
  Sex: Female
  Weight: 16.3 kg

DRUGS (10)
  1. SEROQUEL XR [Suspect]
     Route: 048
  2. SEROQUEL XR [Suspect]
     Route: 048
  3. BUSPIRONE HCL [Concomitant]
     Route: 065
  4. BENTYL [Concomitant]
     Dosage: 20 TWO TIMES A DAY
     Route: 065
  5. LYRICA [Concomitant]
     Route: 065
  6. TOPIRAMATE [Concomitant]
     Route: 065
  7. VYTORIN [Concomitant]
     Dosage: 10/80 ONCE A DAY
     Route: 065
  8. PRILOSEC [Concomitant]
     Route: 065
  9. METFORMIN [Concomitant]
     Dosage: 1000 TWO TIMES A DAY
     Route: 065
  10. PRINIVIL [Concomitant]
     Route: 065

REACTIONS (1)
  - SOMNAMBULISM [None]
